FAERS Safety Report 5238806-1 (Version None)
Quarter: 2007Q1

REPORT INFORMATION
  Report Type: 
  Country: None (occurrence: None)
  Receive Date: 20070215
  Receipt Date: 20070205
  Transmission Date: 20070707
  Serious: Yes (Hospitalization)
  Sender: FDA-Public Use
  Company Number: US-PFIZER INC-2006125211

PATIENT
  Sex: Male
  Weight: 117.9 kg

DRUGS (8)
  1. ATORVASTATIN [Suspect]
     Indication: CORONARY ARTERY DISEASE
     Route: 048
     Dates: start: 20041108, end: 20060926
  2. LABETALOL HCL [Concomitant]
     Route: 048
  3. NORVASC [Concomitant]
     Route: 048
     Dates: start: 20011213
  4. ASPIRIN [Concomitant]
     Route: 048
     Dates: start: 19920324
  5. VALSARTAN [Concomitant]
     Route: 048
     Dates: start: 20040525
  6. ALLOPURINOL SODIUM [Concomitant]
     Route: 048
     Dates: start: 20030916
  7. HUMALOG [Concomitant]
     Dosage: TEXT:75/25
     Route: 058
     Dates: start: 20060401
  8. FUROSEMIDE [Concomitant]
     Route: 048
     Dates: start: 20051001

REACTIONS (10)
  - ANGIOPATHY [None]
  - BLOOD PRESSURE SYSTOLIC INCREASED [None]
  - DERMATOMYOSITIS [None]
  - HAEMATOCRIT DECREASED [None]
  - HYPERREFLEXIA [None]
  - OCCULT BLOOD POSITIVE [None]
  - OEDEMA PERIPHERAL [None]
  - PARAESTHESIA [None]
  - PNEUMONIA [None]
  - SKIN ATROPHY [None]
